FAERS Safety Report 20610849 (Version 1)
Quarter: 2022Q1

REPORT INFORMATION
  Report Type: Spontaneous
  Country: RO (occurrence: RO)
  Receive Date: 20220318
  Receipt Date: 20220318
  Transmission Date: 20220424
  Serious: Yes (Other)
  Sender: FDA-Public Use
  Company Number: RO-AMGEN-ROUSP2022015432

PATIENT
  Age: 63 Year
  Sex: Male

DRUGS (4)
  1. FLUOROURACIL [Suspect]
     Active Substance: FLUOROURACIL
     Indication: Colorectal cancer metastatic
     Dosage: UNK UNK, BIWEEKLY (UNK, Q2WK)
     Route: 065
     Dates: start: 20201016
  2. IRINOTECAN [Suspect]
     Active Substance: IRINOTECAN
     Indication: Colorectal cancer metastatic
     Dosage: UNK, BIWEEKLY (UNK UNK, Q2WK)
     Route: 065
     Dates: start: 20201016
  3. LEUCOVORIN [Suspect]
     Active Substance: LEUCOVORIN
     Indication: Colorectal cancer metastatic
     Dosage: UNK, BIWEEKLY  (UNK, Q2WK)
     Route: 065
     Dates: start: 20201016
  4. VECTIBIX [Suspect]
     Active Substance: PANITUMUMAB
     Indication: Colorectal cancer metastatic
     Dosage: 6 MILLIGRAM/KILOGRAM, BIWEEKLY (6 MILLIGRAM/KILOGRAM, Q2WK)
     Route: 065
     Dates: start: 20201016

REACTIONS (4)
  - Colorectal cancer metastatic [Unknown]
  - Skin toxicity [Unknown]
  - Therapy partial responder [Unknown]
  - Condition aggravated [Unknown]

NARRATIVE: CASE EVENT DATE: 20210421
